FAERS Safety Report 16125369 (Version 1)
Quarter: 2019Q1

REPORT INFORMATION
  Report Type: Spontaneous
  Country: DK (occurrence: DK)
  Receive Date: 20190327
  Receipt Date: 20190327
  Transmission Date: 20190418
  Serious: Yes (Disabling)
  Sender: FDA-Public Use
  Company Number: DK-AMGEN-DNKSP2019046431

PATIENT
  Age: 40 Year
  Sex: Female

DRUGS (3)
  1. REMSIMA [Suspect]
     Active Substance: INFLIXIMAB
     Indication: PSORIATIC ARTHROPATHY
     Dosage: UNK
     Route: 065
     Dates: start: 20151019, end: 201512
  2. ENBREL [Suspect]
     Active Substance: ETANERCEPT
     Indication: PSORIATIC ARTHROPATHY
     Dosage: UNK
     Route: 065
     Dates: start: 20150603, end: 20150816
  3. ENBREL [Suspect]
     Active Substance: ETANERCEPT
     Dosage: UNK (DOSE WAS SLIGHTLY ADJUSTED DOWNWARDS)
     Route: 065
     Dates: start: 20150817, end: 20150924

REACTIONS (7)
  - Fatigue [Not Recovered/Not Resolved]
  - Loss of personal independence in daily activities [Not Recovered/Not Resolved]
  - Chest pain [Recovered/Resolved]
  - Pain [Not Recovered/Not Resolved]
  - Malaise [Recovered/Resolved]
  - Cognitive disorder [Not Recovered/Not Resolved]
  - Nausea [Recovered/Resolved]

NARRATIVE: CASE EVENT DATE: 2015
